FAERS Safety Report 7161464-6 (Version None)
Quarter: 2010Q4

REPORT INFORMATION
  Report Type: 
  Country: None (occurrence: None)
  Receive Date: 20101215
  Receipt Date: 20101207
  Transmission Date: 20110411
  Serious: Yes (Other)
  Sender: FDA-Public Use
  Company Number: PHHY2010FR75886

PATIENT
  Age: 79 Year
  Sex: Female

DRUGS (2)
  1. TERBINAFINE HCL [Suspect]
     Indication: INTERTRIGO
     Dosage: UNK
     Route: 048
  2. AMINOPENICILLIN [Suspect]
     Indication: ERYSIPELAS
     Dosage: UNK

REACTIONS (8)
  - ACUTE GENERALISED EXANTHEMATOUS PUSTULOSIS [None]
  - ERYSIPELAS [None]
  - ERYTHEMA [None]
  - LEUKOCYTOSIS [None]
  - NEUTROPHIL COUNT INCREASED [None]
  - PYREXIA [None]
  - RASH [None]
  - RASH PUSTULAR [None]
